FAERS Safety Report 9665849 (Version 1)
Quarter: 2013Q4

REPORT INFORMATION
  Report Type: Spontaneous
  Country: US (occurrence: None)
  Receive Date: 20131101
  Receipt Date: 20131101
  Transmission Date: 20140711
  Serious: Yes (Other)
  Sender: FDA-Public Use
  Company Number: None

PATIENT
  Age: 61 Year
  Sex: Female
  Weight: 56.7 kg

DRUGS (2)
  1. LIDOCAINE PATCH 5% WATSON LABORATORIES, INC. [Suspect]
     Dosage: 1 PATCH PER DAY; ONCE DAILY; APPLIED AS MEDICATED PATCH TO SKIN
     Route: 061
     Dates: start: 20131017, end: 20131031
  2. LIDOCAINE PATCH 5% WATSON LABORATORIES, INC. [Suspect]
     Indication: EXOSTOSIS
     Dosage: 1 PATCH PER DAY; ONCE DAILY; APPLIED AS MEDICATED PATCH TO SKIN
     Route: 061
     Dates: start: 20131017, end: 20131031

REACTIONS (2)
  - Product adhesion issue [None]
  - Product substitution issue [None]
